FAERS Safety Report 10239318 (Version 3)
Quarter: 2016Q3

REPORT INFORMATION
  Report Type: Spontaneous
  Country: JP (occurrence: JP)
  Receive Date: 20140616
  Receipt Date: 20160801
  Transmission Date: 20161109
  Serious: Yes (Hospitalization, Other)
  Sender: FDA-Public Use
  Company Number: JP-BRISTOL-MYERS SQUIBB COMPANY-21013842

PATIENT
  Age: 80 Year
  Sex: Female

DRUGS (5)
  1. GLUFAST [Concomitant]
     Active Substance: MITIGLINIDE
     Indication: DIABETES MELLITUS
     Dosage: 30 MG, QD
     Route: 048
  2. METFORMIN HYDROCHLORIDE. [Suspect]
     Active Substance: METFORMIN HYDROCHLORIDE
     Indication: DIABETES MELLITUS
     Dosage: 750 MG, QD
     Route: 048
  3. METFORMIN [Suspect]
     Active Substance: METFORMIN HYDROCHLORIDE
     Indication: DIABETES MELLITUS
     Dosage: 750 MG, QD
     Route: 048
  4. MEXILETINE HCL [Suspect]
     Active Substance: MEXILETINE HYDROCHLORIDE
     Indication: ARRHYTHMIA
     Dosage: UNK
     Route: 065
     Dates: start: 20130830, end: 20131011
  5. CICLOSPORIN [Concomitant]
     Active Substance: CYCLOSPORINE
     Indication: DRUG REACTION WITH EOSINOPHILIA AND SYSTEMIC SYMPTOMS
     Route: 065

REACTIONS (9)
  - Rash [Unknown]
  - Drug reaction with eosinophilia and systemic symptoms [Unknown]
  - Diabetic ketoacidosis [Unknown]
  - Pyrexia [Unknown]
  - Impaired insulin secretion [Unknown]
  - Vomiting [Unknown]
  - Fulminant type 1 diabetes mellitus [Unknown]
  - Oropharyngeal pain [Unknown]
  - Hyperglycaemia [Unknown]

NARRATIVE: CASE EVENT DATE: 20131011
